FAERS Safety Report 7632649-7 (Version None)
Quarter: 2011Q3

REPORT INFORMATION
  Report Type: 
  Country: None (occurrence: None)
  Receive Date: 20110725
  Receipt Date: 20101020
  Transmission Date: 20111222
  Serious: No
  Sender: FDA-Public Use
  Company Number: US-BRISTOL-MYERS SQUIBB COMPANY-15379936

PATIENT
  Age: 71 Year
  Sex: Male

DRUGS (2)
  1. LOVENOX [Suspect]
     Indication: THROMBOSIS
     Route: 058
     Dates: start: 20101019
  2. COUMADIN [Suspect]
     Indication: THROMBOSIS
     Route: 065
     Dates: start: 20101019

REACTIONS (1)
  - INJECTION SITE HAEMATOMA [None]
